FAERS Safety Report 5701444-8 (Version None)
Quarter: 2008Q2

REPORT INFORMATION
  Report Type: 
  Country: None (occurrence: None)
  Receive Date: 20080407
  Receipt Date: 20080325
  Transmission Date: 20081010
  Serious: Yes (Disabling, Other)
  Sender: FDA-Public Use
  Company Number: GXKR2008CH02790

PATIENT
  Age: 24 Year
  Sex: Male

DRUGS (2)
  1. PREDNISONE [Suspect]
     Indication: AUTOIMMUNE DISORDER
     Dosage: 10 MG, QD, ORAL
     Route: 048
  2. CYCLOSPORINE [Suspect]
     Indication: AUTOIMMUNE DISORDER
     Dosage: 200 MG, QD, ORAL
     Route: 048

REACTIONS (1)
  - EYE INFECTION TOXOPLASMAL [None]
